FAERS Safety Report 16737855 (Version 3)
Quarter: 2019Q4

REPORT INFORMATION
  Report Type: Report from Study
  Country: None (occurrence: CL)
  Receive Date: 20190824
  Receipt Date: 20191018
  Transmission Date: 20200122
  Serious: No
  Sender: FDA-Public Use
  Company Number: CL-ABBVIE-19K-034-2894874-00

PATIENT
  Age: 29 Year
  Sex: Female

DRUGS (1)
  1. HUMIRA [Suspect]
     Active Substance: ADALIMUMAB
     Indication: JUVENILE IDIOPATHIC ARTHRITIS
     Route: 058
     Dates: start: 20190508

REACTIONS (11)
  - Injection site hypersensitivity [Not Recovered/Not Resolved]
  - Injection site bruising [Unknown]
  - Myalgia [Not Recovered/Not Resolved]
  - Injection site erythema [Recovering/Resolving]
  - Drug ineffective [Unknown]
  - Juvenile idiopathic arthritis [Unknown]
  - Injection site hypersensitivity [Recovering/Resolving]
  - Injection site inflammation [Recovering/Resolving]
  - Fibromyalgia [Unknown]
  - Injection site pruritus [Recovering/Resolving]
  - Arthralgia [Not Recovered/Not Resolved]

NARRATIVE: CASE EVENT DATE: 2019
